FAERS Safety Report 9641890 (Version 3)
Quarter: 2014Q2

REPORT INFORMATION
  Report Type: Spontaneous
  Country: US (occurrence: US)
  Receive Date: 20131023
  Receipt Date: 20140521
  Transmission Date: 20141212
  Serious: Yes (Hospitalization)
  Sender: FDA-Public Use
  Company Number: US-B.I. PHARMACEUTICALS,INC./RIDGEFIELD-2013-BI-33495BP

PATIENT
  Sex: Male
  Weight: 129.27 kg

DRUGS (12)
  1. PRADAXA [Suspect]
     Indication: ATRIAL FIBRILLATION
     Dosage: 300 MG
     Route: 065
     Dates: start: 20120517, end: 20120815
  2. PRADAXA [Suspect]
     Indication: ANTICOAGULANT THERAPY
  3. FLOMAX [Concomitant]
     Route: 065
  4. ATENOLOL [Concomitant]
     Route: 065
  5. ZETIA [Concomitant]
     Route: 065
  6. SIMVASTATIN [Concomitant]
     Route: 065
  7. PLAVIX [Concomitant]
     Route: 065
     Dates: start: 2009, end: 2012
  8. LASIX [Concomitant]
     Route: 065
  9. PENTOXIFYLLINE [Concomitant]
     Route: 065
  10. COLACE [Concomitant]
     Route: 065
  11. NIASPAN [Concomitant]
     Route: 065
  12. ASPIRIN [Concomitant]
     Route: 065

REACTIONS (2)
  - Rectal haemorrhage [Unknown]
  - Gastrointestinal haemorrhage [Unknown]
